FAERS Safety Report 13485205 (Version 2)
Quarter: 2017Q2

REPORT INFORMATION
  Report Type: Spontaneous
  Country: US (occurrence: US)
  Receive Date: 20170425
  Receipt Date: 20170510
  Transmission Date: 20170830
  Serious: Yes (Other)
  Sender: FDA-Public Use
  Company Number: US-AUROBINDO-AUR-APL-2017-32924

PATIENT
  Age: 59 Year
  Sex: Male

DRUGS (1)
  1. METHADONE [Suspect]
     Active Substance: METHADONE HYDROCHLORIDE
     Indication: PRODUCT USED FOR UNKNOWN INDICATION
     Route: 065

REACTIONS (10)
  - Acute kidney injury [Recovering/Resolving]
  - Substance use [Recovering/Resolving]
  - Tachycardia [Recovering/Resolving]
  - Rhabdomyolysis [Recovering/Resolving]
  - Somnolence [Recovering/Resolving]
  - Drug use disorder [Recovering/Resolving]
  - Metabolic acidosis [Recovering/Resolving]
  - Consciousness fluctuating [Recovering/Resolving]
  - Hypotension [Recovering/Resolving]
  - Hyperkalaemia [Recovering/Resolving]
